FAERS Safety Report 9204845 (Version 2)
Quarter: 2013Q2

REPORT INFORMATION
  Report Type: Spontaneous
  Country: US (occurrence: US)
  Receive Date: 20130402
  Receipt Date: 20130403
  Transmission Date: 20140414
  Serious: Yes (Other)
  Sender: FDA-Public Use
  Company Number: US-PFIZER INC-2013103403

PATIENT
  Age: 74 Year
  Sex: Female

DRUGS (4)
  1. LIPITOR [Suspect]
     Dosage: 10 MG, DAILY
     Route: 048
  2. NORVASC [Suspect]
     Dosage: 5 MG, DAILY
     Route: 048
  3. CELEBREX [Suspect]
     Dosage: 200 MG, DAILY
     Route: 048
  4. PREMARIN [Suspect]
     Dosage: 0.9MG, DAILY

REACTIONS (2)
  - Road traffic accident [Recovering/Resolving]
  - Malaise [Not Recovered/Not Resolved]
